FAERS Safety Report 7074486-0 (Version None)
Quarter: 2010Q4

REPORT INFORMATION
  Report Type: 
  Country: None (occurrence: None)
  Receive Date: 20101029
  Receipt Date: 20101020
  Transmission Date: 20110411
  Serious: Yes (Hospitalization)
  Sender: FDA-Public Use
  Company Number: US-US-EMD SERONO, INC.-7023681

PATIENT
  Sex: Female
  Weight: 95 kg

DRUGS (4)
  1. REBIF [Suspect]
     Route: 058
     Dates: start: 20100915
  2. BACLOFEN [Concomitant]
     Indication: MUSCLE SPASMS
  3. METOPROLOL [Concomitant]
     Indication: HYPERTENSION
  4. RANITIDINE [Concomitant]
     Indication: GASTROOESOPHAGEAL REFLUX DISEASE

REACTIONS (4)
  - DIVERTICULITIS [None]
  - FATIGUE [None]
  - INJECTION SITE HAEMATOMA [None]
  - INJECTION SITE PAIN [None]
